FAERS Safety Report 6770863-3 (Version None)
Quarter: 2010Q2

REPORT INFORMATION
  Report Type: 
  Country: None (occurrence: None)
  Receive Date: 20100614
  Receipt Date: 20100528
  Transmission Date: 20101027
  Serious: Yes (Life-Threatening)
  Sender: FDA-Public Use
  Company Number: A-CH2010-36914

PATIENT
  Age: 81 Year
  Sex: Female
  Weight: 50 kg

DRUGS (7)
  1. TRACLEER [Suspect]
     Indication: PULMONARY ARTERIAL HYPERTENSION
     Dosage: 62.5 MG, BID, ORAL
     Route: 048
     Dates: start: 20100511, end: 20100518
  2. BISOPROLOL FUMARATE [Concomitant]
  3. CORDARONE [Concomitant]
  4. AMLODIPINE BESYLATE [Concomitant]
  5. BUMETANIDE [Concomitant]
  6. SINTROM [Concomitant]
  7. FENOFIBRATE [Concomitant]

REACTIONS (2)
  - PULMONARY OEDEMA [None]
  - RESPIRATORY FAILURE [None]
